FAERS Safety Report 20257476 (Version 2)
Quarter: 2022Q4

REPORT INFORMATION
  Report Type: Report from Study
  Country: US (occurrence: None)
  Receive Date: 20211230
  Receipt Date: 20221004
  Transmission Date: 20230113
  Serious: Yes (Hospitalization)
  Sender: FDA-Public Use
  Company Number: US-ROCHE-2989879

PATIENT
  Age: 69 Year
  Sex: Female
  Weight: 51.9 kg

DRUGS (6)
  1. RITUXIMAB [Suspect]
     Active Substance: RITUXIMAB
     Indication: Diffuse large B-cell lymphoma stage III
     Dosage: DATE OF LAST DOSE PRIOR TO EVENT ON 17/SEP/2021, UNKNOWN
     Route: 042
     Dates: start: 20210917
  2. EPCORITAMAB [Suspect]
     Active Substance: EPCORITAMAB
     Indication: Diffuse large B-cell lymphoma stage III
     Dosage: DATE OF LAST DOSE PRIOR TO EVENT ON 17/SEP/2021, SUBSEQUENT DOSE (0.16 MG) OF EPCORITAMAB WAS ON 30/
     Route: 058
     Dates: start: 20210917, end: 20210917
  3. CYCLOPHOSPHAMIDE [Suspect]
     Active Substance: CYCLOPHOSPHAMIDE
     Indication: Diffuse large B-cell lymphoma stage III
     Route: 042
     Dates: start: 20210917
  4. DOXORUBICIN HYDROCHLORIDE [Suspect]
     Active Substance: DOXORUBICIN HYDROCHLORIDE
     Indication: Diffuse large B-cell lymphoma stage III
     Route: 042
     Dates: start: 20210917
  5. VINCRISTINE SULFATE [Suspect]
     Active Substance: VINCRISTINE SULFATE
     Indication: Diffuse large B-cell lymphoma stage III
     Dosage: DATE OF LAST DOSE PRIOR TO EVENT ON 17/SEP/2021
     Route: 042
     Dates: start: 20210917, end: 20210917
  6. PREDNISONE [Suspect]
     Active Substance: PREDNISONE
     Indication: Diffuse large B-cell lymphoma stage III
     Route: 065
     Dates: start: 20210917

REACTIONS (2)
  - Constipation [Unknown]
  - Constipation [Recovered/Resolved]

NARRATIVE: CASE EVENT DATE: 20210920
